FAERS Safety Report 4589951-5 (Version None)
Quarter: 2005Q1

REPORT INFORMATION
  Report Type: 
  Country: None (occurrence: None)
  Receive Date: 20050125
  Receipt Date: 20041028
  Transmission Date: 20050727
  Serious: No
  Sender: FDA-Public Use
  Company Number: USA040771658

PATIENT
  Age: 80 Year
  Sex: Male
  Weight: 77 kg

DRUGS (3)
  1. FORTEO [Suspect]
     Indication: OSTEOPOROSIS
     Dosage: 20 UG/1 DAY
     Dates: start: 20040615
  2. CALCIUM WITH VITAMIN D [Concomitant]
  3. ICAPS PLUS [Concomitant]

REACTIONS (3)
  - BONE PAIN [None]
  - DIZZINESS [None]
  - HEADACHE [None]
